FAERS Safety Report 14789718 (Version 1)
Quarter: 2018Q2

REPORT INFORMATION
  Report Type: Report from Study
  Country: CO (occurrence: CO)
  Receive Date: 20180423
  Receipt Date: 20180423
  Transmission Date: 20180711
  Serious: Yes (Death, Hospitalization)
  Sender: FDA-Public Use
  Company Number: CO-UCBSA-2018016933

PATIENT
  Age: 84 Year
  Sex: Female

DRUGS (1)
  1. ROTIGOTINE [Suspect]
     Active Substance: ROTIGOTINE
     Indication: PARKINSON^S DISEASE
     Dosage: 4 MG, ONCE DAILY (QD)
     Route: 062
     Dates: start: 20171027, end: 20180310

REACTIONS (3)
  - Asthenia [Fatal]
  - Acute myocardial infarction [Fatal]
  - Diarrhoea [Fatal]

NARRATIVE: CASE EVENT DATE: 20180303
